FAERS Safety Report 10518784 (Version 1)
Quarter: 2014Q4

REPORT INFORMATION
  Report Type: Spontaneous
  Country: US (occurrence: US)
  Receive Date: 20141015
  Receipt Date: 20141015
  Transmission Date: 20150528
  Serious: Yes (Hospitalization)
  Sender: FDA-Public Use
  Company Number: CHPA2014US013870

PATIENT
  Age: 46 Year
  Sex: Female

DRUGS (4)
  1. PREVACID [Suspect]
     Active Substance: LANSOPRAZOLE
     Indication: WRONG TECHNIQUE IN DRUG USAGE PROCESS
  2. PREVACID [Suspect]
     Active Substance: LANSOPRAZOLE
     Indication: HYPERCHLORHYDRIA
     Dosage: 1 DF, QD
     Route: 048
     Dates: start: 201212
  3. PREVACID [Suspect]
     Active Substance: LANSOPRAZOLE
     Indication: INCORRECT DRUG ADMINISTRATION DURATION
  4. PREVACID [Suspect]
     Active Substance: LANSOPRAZOLE
     Indication: OFF LABEL USE

REACTIONS (4)
  - Scar [Recovering/Resolving]
  - Abscess [Recovered/Resolved]
  - Lung infection [Recovered/Resolved]
  - Pneumonia necrotising [Recovered/Resolved]

NARRATIVE: CASE EVENT DATE: 201303
